FAERS Safety Report 24877483 (Version 3)
Quarter: 2025Q1

REPORT INFORMATION
  Report Type: Spontaneous
  Country: CA (occurrence: CA)
  Receive Date: 20250123
  Receipt Date: 20250131
  Transmission Date: 20250409
  Serious: Yes (Hospitalization)
  Sender: SANDOZ
  Company Number: CA-002147023-NVSC2023CA091334

PATIENT
  Age: 59 Year
  Sex: Male

DRUGS (37)
  1. AZATHIOPRINE [Suspect]
     Active Substance: AZATHIOPRINE
     Indication: Eye pain
     Route: 065
  2. AZATHIOPRINE [Suspect]
     Active Substance: AZATHIOPRINE
     Indication: Sinus pain
     Route: 065
  3. CYCLOPHOSPHAMIDE [Suspect]
     Active Substance: CYCLOPHOSPHAMIDE
     Route: 042
  4. CYCLOPHOSPHAMIDE [Suspect]
     Active Substance: CYCLOPHOSPHAMIDE
     Indication: Plasmablastic lymphoma
     Route: 065
  5. CYCLOPHOSPHAMIDE [Suspect]
     Active Substance: CYCLOPHOSPHAMIDE
     Route: 065
  6. ETOPOSIDE [Suspect]
     Active Substance: ETOPOSIDE
     Dosage: 100 MG/M2, QD
     Route: 040
  7. ETOPOSIDE [Suspect]
     Active Substance: ETOPOSIDE
     Dosage: 100 MG/M2, QD (1 EVERY 1 DAYS)
     Route: 042
  8. ETOPOSIDE [Suspect]
     Active Substance: ETOPOSIDE
     Route: 040
  9. ETOPOSIDE [Suspect]
     Active Substance: ETOPOSIDE
     Route: 042
  10. ETOPOSIDE [Suspect]
     Active Substance: ETOPOSIDE
     Route: 048
  11. ETOPOSIDE [Suspect]
     Active Substance: ETOPOSIDE
     Route: 040
  12. ETOPOSIDE [Suspect]
     Active Substance: ETOPOSIDE
     Indication: Plasmablastic lymphoma
     Route: 042
  13. ETOPOSIDE [Suspect]
     Active Substance: ETOPOSIDE
     Route: 065
  14. IMURAN [Suspect]
     Active Substance: AZATHIOPRINE
     Indication: Eye pain
     Route: 065
  15. IMURAN [Suspect]
     Active Substance: AZATHIOPRINE
     Indication: Sinus pain
     Route: 065
  16. METHOTREXATE [Suspect]
     Active Substance: METHOTREXATE
     Route: 037
  17. METHOTREXATE [Suspect]
     Active Substance: METHOTREXATE
     Indication: Prophylaxis
     Route: 065
  18. METHOTREXATE SODIUM [Suspect]
     Active Substance: METHOTREXATE SODIUM
     Route: 037
  19. METHOTREXATE SODIUM [Suspect]
     Active Substance: METHOTREXATE SODIUM
     Route: 065
  20. METHOTREXATE SODIUM [Suspect]
     Active Substance: METHOTREXATE SODIUM
     Indication: Prophylaxis
     Route: 065
  21. PREDNISOLONE [Suspect]
     Active Substance: PREDNISOLONE
     Route: 048
  22. PREDNISOLONE [Suspect]
     Active Substance: PREDNISOLONE
     Route: 048
  23. PREDNISOLONE [Suspect]
     Active Substance: PREDNISOLONE
     Indication: Plasmablastic lymphoma
     Route: 065
  24. PREDNISOLONE [Suspect]
     Active Substance: PREDNISOLONE
     Route: 065
  25. RITUXIMAB [Suspect]
     Active Substance: RITUXIMAB
     Dosage: 375 MG/M2, QW (1 EVERY 1 WEEKS)
     Route: 065
  26. RITUXIMAB [Suspect]
     Active Substance: RITUXIMAB
     Indication: Prophylaxis
     Route: 065
  27. VINCRISTINE SULFATE [Suspect]
     Active Substance: VINCRISTINE SULFATE
     Route: 042
  28. VINCRISTINE SULFATE [Suspect]
     Active Substance: VINCRISTINE SULFATE
     Indication: Plasmablastic lymphoma
     Route: 065
  29. VINCRISTINE SULFATE [Suspect]
     Active Substance: VINCRISTINE SULFATE
     Route: 065
  30. FLUCONAZOLE [Concomitant]
     Active Substance: FLUCONAZOLE
     Indication: Antifungal treatment
     Route: 042
  31. IMURAN [Concomitant]
     Active Substance: AZATHIOPRINE
     Indication: Eye pain
     Route: 065
  32. IMURAN [Concomitant]
     Active Substance: AZATHIOPRINE
     Indication: Sinus pain
     Route: 065
  33. MEROPENEM [Concomitant]
     Active Substance: MEROPENEM
     Indication: Antibiotic therapy
     Route: 042
  34. VANCOMYCIN [Concomitant]
     Active Substance: VANCOMYCIN
     Route: 040
  35. VANCOMYCIN [Concomitant]
     Active Substance: VANCOMYCIN
     Route: 040
  36. VANCOMYCIN [Concomitant]
     Active Substance: VANCOMYCIN
     Route: 040
  37. VANCOMYCIN [Concomitant]
     Active Substance: VANCOMYCIN
     Indication: Antibiotic therapy
     Route: 042

REACTIONS (6)
  - Epstein-Barr virus infection [Recovered/Resolved]
  - Bacteraemia [Recovered/Resolved]
  - Pseudomonas aeruginosa meningitis [Recovered/Resolved]
  - Staphylococcal bacteraemia [Recovered/Resolved]
  - Drug ineffective [Recovered/Resolved]
  - Off label use [Recovered/Resolved]
